FAERS Safety Report 7586388-1 (Version None)
Quarter: 2011Q3

REPORT INFORMATION
  Report Type: 
  Country: None (occurrence: None)
  Receive Date: 20110701
  Receipt Date: 20110623
  Transmission Date: 20111222
  Serious: Yes (Other)
  Sender: FDA-Public Use
  Company Number: A0932747A

PATIENT
  Age: 61 Year
  Sex: Female

DRUGS (9)
  1. LAMOTRIGINE [Suspect]
     Route: 048
  2. ZESTRIL [Concomitant]
  3. NORVASC [Concomitant]
  4. TOPROL-XL [Concomitant]
  5. LAMICTAL [Suspect]
     Route: 048
     Dates: start: 20080101, end: 20110617
  6. IMDUR [Concomitant]
  7. LAMICTAL XR [Suspect]
     Dosage: 900MG PER DAY
     Route: 048
     Dates: start: 20110617
  8. INSULIN [Concomitant]
  9. ZOCOR [Concomitant]

REACTIONS (6)
  - DRUG INEFFECTIVE [None]
  - MOTOR DYSFUNCTION [None]
  - OVERDOSE [None]
  - MUSCULAR WEAKNESS [None]
  - HALLUCINATION [None]
  - CONVULSION [None]
